FAERS Safety Report 9415887 (Version 3)
Quarter: 2013Q3

REPORT INFORMATION
  Report Type: Report from Study
  Country: JP (occurrence: JP)
  Receive Date: 20130724
  Receipt Date: 20130917
  Transmission Date: 20140515
  Serious: Yes (Hospitalization)
  Sender: FDA-Public Use
  Company Number: JP-BIOGENIDEC-2013BI061155

PATIENT
  Age: 47 Year
  Sex: Female
  Weight: 53 kg

DRUGS (2)
  1. BLINDED THERAPY [Suspect]
     Indication: RELAPSING-REMITTING MULTIPLE SCLEROSIS
     Route: 048
     Dates: start: 20130628
  2. KETOPROFEN [Concomitant]
     Indication: PAIN IN EXTREMITY
     Route: 062
     Dates: start: 20130603

REACTIONS (1)
  - Anxiety [Recovered/Resolved]
